FAERS Safety Report 11775336 (Version 2)
Quarter: 2015Q4

REPORT INFORMATION
  Report Type: Spontaneous
  Country: US (occurrence: US)
  Receive Date: 20151125
  Receipt Date: 20151204
  Transmission Date: 20160304
  Serious: No
  Sender: FDA-Public Use
  Company Number: US-ACTELION PHARMACEUTICALS US, INC.-A-US2015-114107

PATIENT
  Age: 66 Year
  Sex: Female

DRUGS (1)
  1. VELETRI [Suspect]
     Active Substance: EPOPROSTENOL
     Indication: PULMONARY ARTERIAL HYPERTENSION
     Dosage: 44.3 NG/KG, PER MIN
     Route: 042
     Dates: start: 20110810

REACTIONS (12)
  - Pain in extremity [Unknown]
  - Headache [Unknown]
  - Flushing [Unknown]
  - Vaginal disorder [Unknown]
  - Hypoaesthesia [Unknown]
  - Rash generalised [Unknown]
  - Alopecia [Unknown]
  - Paraesthesia [Unknown]
  - Hair texture abnormal [Unknown]
  - Functional gastrointestinal disorder [Unknown]
  - Musculoskeletal pain [Unknown]
  - Pain in jaw [Unknown]
